FAERS Safety Report 8015212-8 (Version None)
Quarter: 2011Q4

REPORT INFORMATION
  Report Type: 
  Country: None (occurrence: None)
  Receive Date: 20111230
  Receipt Date: 20111228
  Transmission Date: 20120403
  Serious: No
  Sender: FDA-Public Use
  Company Number: US-BIOGENIDEC-2011BI048834

PATIENT
  Age: 65 Year
  Sex: Female

DRUGS (4)
  1. TYSABRI [Suspect]
     Indication: MULTIPLE SCLEROSIS
     Route: 042
  2. AVONEX [Concomitant]
     Route: 030
     Dates: start: 20001115, end: 20031115
  3. AVONEX [Concomitant]
     Route: 030
     Dates: start: 19990514, end: 20001020
  4. AVONEX [Concomitant]
     Indication: MULTIPLE SCLEROSIS
     Route: 030
     Dates: start: 20040229

REACTIONS (1)
  - VAGINAL INFECTION [None]
